FAERS Safety Report 8990210 (Version 1)
Quarter: 2012Q4

REPORT INFORMATION
  Report Type: 
  Country: IT (occurrence: IT)
  Receive Date: 20121228
  Receipt Date: 20121228
  Transmission Date: 20130627
  Serious: Yes (Life-Threatening)
  Sender: FDA-Public Use
  Company Number: IT-WATSON-2012-22963

PATIENT

DRUGS (1)
  1. METFORMIN HYDROCHLORIDE [Suspect]
     Indication: PRODUCT USED FOR UNKNOWN INDICATION
     Dosage: 500 mg, daily
     Route: 048
     Dates: start: 20120901, end: 20121114

REACTIONS (6)
  - Lactic acidosis [Not Recovered/Not Resolved]
  - Hypotension [Not Recovered/Not Resolved]
  - Hypothermia [Not Recovered/Not Resolved]
  - Coma [Not Recovered/Not Resolved]
  - Renal failure acute [Not Recovered/Not Resolved]
  - Sopor [Not Recovered/Not Resolved]
